FAERS Safety Report 25819177 (Version 2)
Quarter: 2025Q4

REPORT INFORMATION
  Report Type: Spontaneous
  Country: US (occurrence: US)
  Receive Date: 20250918
  Receipt Date: 20251224
  Transmission Date: 20260118
  Serious: No
  Sender: SANOFI AVENTIS
  Company Number: US-SA-2025SA277430

PATIENT
  Age: 67 Year
  Sex: Male
  Weight: 92.53 kg

DRUGS (1)
  1. DUPIXENT [Suspect]
     Active Substance: DUPILUMAB
     Indication: Dermatitis atopic
     Dosage: 300 MG, QOW
     Route: 058
     Dates: start: 202508

REACTIONS (9)
  - Malaise [Not Recovered/Not Resolved]
  - Chills [Unknown]
  - Sleep disorder [Unknown]
  - Lower respiratory tract congestion [Unknown]
  - Hyperaesthesia [Unknown]
  - Pain [Unknown]
  - Urticaria [Unknown]
  - Myalgia [Not Recovered/Not Resolved]
  - Arthralgia [Unknown]

NARRATIVE: CASE EVENT DATE: 20051201
